FAERS Safety Report 4496151-6 (Version None)
Quarter: 2004Q4

REPORT INFORMATION
  Report Type: 
  Country: None (occurrence: None)
  Receive Date: 20041108
  Receipt Date: 20041108
  Transmission Date: 20050328
  Serious: Yes (Life-Threatening)
  Sender: FDA-Public Use
  Company Number: None

PATIENT
  Age: 39 Year
  Sex: Male
  Weight: 63.5036 kg

DRUGS (2)
  1. EFFEXOR [Suspect]
     Indication: ANXIETY
     Dosage: 2 TABLETS DAY ORAL
     Route: 048
     Dates: start: 20030901, end: 20041105
  2. EFFEXOR [Suspect]
     Indication: DEPRESSION
     Dosage: 2 TABLETS DAY ORAL
     Route: 048
     Dates: start: 20030901, end: 20041105

REACTIONS (10)
  - ABDOMINAL DISCOMFORT [None]
  - ALCOHOL USE [None]
  - DISTURBANCE IN ATTENTION [None]
  - DRUG WITHDRAWAL SYNDROME [None]
  - HALLUCINATION [None]
  - LOSS OF EMPLOYMENT [None]
  - NAUSEA [None]
  - PSYCHIATRIC SYMPTOM [None]
  - PUPIL FIXED [None]
  - SUICIDAL IDEATION [None]
